FAERS Safety Report 17186250 (Version 1)
Quarter: 2019Q4

REPORT INFORMATION
  Report Type: Spontaneous
  Country: FR (occurrence: FR)
  Receive Date: 20191220
  Receipt Date: 20191220
  Transmission Date: 20200122
  Serious: Yes (Life-Threatening)
  Sender: FDA-Public Use
  Company Number: FR-MYLANLABS-2019M1126690

PATIENT
  Age: 44 Year
  Sex: Male
  Weight: 102 kg

DRUGS (1)
  1. CIPROFLOXACIN. [Suspect]
     Active Substance: CIPROFLOXACIN
     Indication: CHRONIC SINUSITIS
     Dosage: 500 MILLIGRAM, QD
     Route: 048
     Dates: start: 2018, end: 20190816

REACTIONS (1)
  - Aortic aneurysm rupture [Recovered/Resolved with Sequelae]

NARRATIVE: CASE EVENT DATE: 20190816
